FAERS Safety Report 22134653 (Version 1)
Quarter: 2023Q1

REPORT INFORMATION
  Report Type: Spontaneous
  Country: US (occurrence: None)
  Receive Date: 20230322
  Receipt Date: 20230322
  Transmission Date: 20230417
  Serious: No
  Sender: FDA-Public Use
  Company Number: None

PATIENT
  Age: 31 Year
  Sex: Male
  Weight: 101.2 kg

DRUGS (17)
  1. PROMACTA [Suspect]
     Active Substance: ELTROMBOPAG OLAMINE
     Indication: Immune thrombocytopenia
     Dosage: FREQUENCY : DAILY;?
     Route: 048
  2. ACETAMINOPHEN EXTRA STRENGTH [Concomitant]
  3. BACLOFEN [Concomitant]
  4. BENADRYL [Concomitant]
  5. FLUTICASONE PROPIONATE [Concomitant]
  6. HYDROCORTISONE [Concomitant]
  7. LIDOCAINE VISCOUS HCL [Concomitant]
  8. LIDOCAINE-PRILOCAINE [Concomitant]
  9. MAGIC MOUTHWASH [Concomitant]
  10. METOPROLOL TARTRATE [Concomitant]
  11. NYSTATIN [Concomitant]
  12. ONDANSETRON [Concomitant]
  13. PROCHLORPERAZINE [Concomitant]
  14. PSYLLUM HUSK [Concomitant]
  15. SERTRALINE [Concomitant]
  16. TRAZODONE [Concomitant]
     Active Substance: TRAZODONE HYDROCHLORIDE
  17. TUMS [Concomitant]

REACTIONS (1)
  - Blood bilirubin increased [None]
